FAERS Safety Report 13349863 (Version 5)
Quarter: 2017Q2

REPORT INFORMATION
  Report Type: Spontaneous
  Country: DE (occurrence: DE)
  Receive Date: 20170320
  Receipt Date: 20170606
  Transmission Date: 20170830
  Serious: Yes (Death, Life-Threatening, Hospitalization)
  Sender: FDA-Public Use
  Company Number: DE-SA-2017SA045219

PATIENT
  Sex: Female

DRUGS (6)
  1. LACOSAMIDE. [Concomitant]
     Active Substance: LACOSAMIDE
     Dosage: 1-0-1
  2. FONDAPARINUX [Concomitant]
     Active Substance: FONDAPARINUX
     Dosage: 0-0-1
  3. SALBUTAMOL SULFATE/IPRATROPIUM BROMIDE [Concomitant]
     Dosage: 1-1-1
  4. LEVETIRACETAM. [Concomitant]
     Active Substance: LEVETIRACETAM
     Dosage: 1-0-1
  5. LEMTRADA [Suspect]
     Active Substance: ALEMTUZUMAB
     Indication: RELAPSING-REMITTING MULTIPLE SCLEROSIS
     Route: 041
     Dates: start: 20170227, end: 20170303
  6. ZONISAMIDE. [Concomitant]
     Active Substance: ZONISAMIDE
     Dosage: 1-0-2

REACTIONS (13)
  - Chest pain [Unknown]
  - Circulatory collapse [Unknown]
  - Anaphylactic shock [Unknown]
  - Leukopenia [Unknown]
  - Pneumonia [Fatal]
  - Acute abdomen [Unknown]
  - Sepsis [Fatal]
  - Dysphagia [Unknown]
  - Blood pressure decreased [Unknown]
  - Multiple organ dysfunction syndrome [Fatal]
  - Septic shock [Unknown]
  - Tachycardia [Unknown]
  - Lymphopenia [Unknown]

NARRATIVE: CASE EVENT DATE: 201703
